FAERS Safety Report 19310445 (Version 1)
Quarter: 2021Q2

REPORT INFORMATION
  Report Type: Spontaneous
  Country: US (occurrence: US)
  Receive Date: 20210526
  Receipt Date: 20210526
  Transmission Date: 20210717
  Serious: No
  Sender: FDA-Public Use
  Company Number: US-BAUSCH-BL-2021-014383

PATIENT
  Sex: Female

DRUGS (4)
  1. TOBRAMYCIN AND DEXAMETHASONE [Suspect]
     Active Substance: DEXAMETHASONE\TOBRAMYCIN
     Indication: HORDEOLUM
     Dosage: IN ONE EYE.
     Route: 047
     Dates: start: 20210420, end: 20210420
  2. AMOXICILLIN. [Concomitant]
     Active Substance: AMOXICILLIN
     Indication: PRODUCT USED FOR UNKNOWN INDICATION
     Route: 048
  3. COUMADIN [Concomitant]
     Active Substance: WARFARIN SODIUM
     Indication: PRODUCT USED FOR UNKNOWN INDICATION
     Route: 048
  4. BAUSCH AND LOMB PRODUCT (UNSPECIFIED) [Suspect]
     Active Substance: UNSPECIFIED INGREDIENT
     Indication: DRY EYE
     Dosage: ONLY IN THE UNAFFECTED EYE.
     Route: 047

REACTIONS (4)
  - Visual impairment [Recovering/Resolving]
  - Foreign body sensation in eyes [Recovering/Resolving]
  - Eye pain [Recovering/Resolving]
  - Swelling of eyelid [Recovering/Resolving]

NARRATIVE: CASE EVENT DATE: 20210421
